FAERS Safety Report 6943670-6 (Version None)
Quarter: 2010Q3

REPORT INFORMATION
  Report Type: 
  Country: None (occurrence: None)
  Receive Date: 20100826
  Receipt Date: 20100816
  Transmission Date: 20110219
  Serious: Yes (Other)
  Sender: FDA-Public Use
  Company Number: US-GENENTECH-305653

PATIENT

DRUGS (4)
  1. RITUXIMAB [Suspect]
     Indication: HAEMATOLOGICAL MALIGNANCY
     Dosage: 375 MG/M2, 1/WEEK
     Route: 042
  2. LENALIDOMIDE [Suspect]
     Indication: HAEMATOLOGICAL MALIGNANCY
     Dosage: UNK
     Route: 048
  3. LENALIDOMIDE [Suspect]
     Dosage: UNK
     Route: 048
  4. ALLOPURINOL [Concomitant]
     Indication: PRODUCT USED FOR UNKNOWN INDICATION
     Dosage: 300 MG, BID
     Route: 048

REACTIONS (10)
  - EMBOLISM VENOUS [None]
  - ENDOCARDITIS [None]
  - FATIGUE [None]
  - HYPERCALCAEMIA [None]
  - INFECTION [None]
  - INFLUENZA LIKE ILLNESS [None]
  - INFUSION RELATED REACTION [None]
  - NEUTROPENIA [None]
  - RENAL FAILURE ACUTE [None]
  - TUMOUR FLARE [None]
